FAERS Safety Report 16671799 (Version 1)
Quarter: 2019Q3

REPORT INFORMATION
  Report Type: Spontaneous
  Country: IN (occurrence: IN)
  Receive Date: 20190806
  Receipt Date: 20190806
  Transmission Date: 20191004
  Serious: Yes (Hospitalization)
  Sender: FDA-Public Use
  Company Number: IN-DRREDDYS-GER/IND/18/0106170

PATIENT
  Age: 64 Year
  Sex: Male

DRUGS (1)
  1. GEMCITABINE. [Suspect]
     Active Substance: GEMCITABINE
     Indication: ADENOCARCINOMA PANCREAS

REACTIONS (2)
  - Toxicity to various agents [Recovered/Resolved]
  - Pseudocellulitis [Recovered/Resolved]
